FAERS Safety Report 24697001 (Version 1)
Quarter: 2024Q4

REPORT INFORMATION
  Report Type: Spontaneous
  Country: GB (occurrence: GB)
  Receive Date: 20241204
  Receipt Date: 20241204
  Transmission Date: 20250115
  Serious: Yes (Other)
  Sender: GILEAD
  Company Number: GB-GILEAD-2024-0695546

PATIENT
  Sex: Female

DRUGS (1)
  1. ZYDELIG [Suspect]
     Active Substance: IDELALISIB
     Indication: Follicular lymphoma
     Dosage: UNK
     Route: 065
     Dates: start: 2019

REACTIONS (1)
  - Breast cancer metastatic [Not Recovered/Not Resolved]
